FAERS Safety Report 7583045-2 (Version None)
Quarter: 2011Q2

REPORT INFORMATION
  Report Type: 
  Country: None (occurrence: None)
  Receive Date: 20110627
  Receipt Date: 20110627
  Transmission Date: 20111010
  Serious: Yes (Life-Threatening, Hospitalization, Other)
  Sender: FDA-Public Use
  Company Number: None

PATIENT
  Age: 63 Year
  Sex: Female
  Weight: 71.1 kg

DRUGS (1)
  1. SIMVASTATIN [Suspect]
     Indication: BLOOD CHOLESTEROL
     Dosage: 80MG ONCE DAILY PO
     Route: 048
     Dates: start: 20100621, end: 20100712

REACTIONS (5)
  - DRUG HYPERSENSITIVITY [None]
  - DIALYSIS [None]
  - ECONOMIC PROBLEM [None]
  - RENAL DISORDER [None]
  - IMPAIRED WORK ABILITY [None]
